FAERS Safety Report 6918167-X (Version None)
Quarter: 2010Q3

REPORT INFORMATION
  Report Type: 
  Country: None (occurrence: None)
  Receive Date: 20100806
  Receipt Date: 20100720
  Transmission Date: 20110219
  Serious: Yes (Other)
  Sender: FDA-Public Use
  Company Number: 2010P1000439

PATIENT
  Age: 63 Year
  Sex: Female

DRUGS (13)
  1. WARFARIN SODIUM [Suspect]
     Dosage: 2.5 MG;QIW;PO, 5 MG;TIW;PO
     Route: 048
     Dates: end: 20080801
  2. WARFARIN SODIUM [Suspect]
     Dosage: 2.5 MG;QIW;PO, 5 MG;TIW;PO
     Route: 048
     Dates: end: 20080801
  3. ALLOPURINOL [Concomitant]
  4. VITAMIN B-12 [Concomitant]
  5. TOLTERODINE [Concomitant]
  6. HYDROCHLOROTHIAZIDE [Concomitant]
  7. LOSARTAN POTASSIUM [Concomitant]
  8. AMLODIPINE [Concomitant]
  9. OMEPRAZOLE [Concomitant]
  10. CLOPIDOGREL [Concomitant]
  11. METOPROLOL SUCCINATE [Concomitant]
  12. SIMVASTATIN [Concomitant]
  13. PREV MEDS = UNKNOWN [Concomitant]

REACTIONS (7)
  - BLOOD PARATHYROID HORMONE INCREASED [None]
  - BLOOD PRESSURE SYSTOLIC INCREASED [None]
  - CALCIPHYLAXIS [None]
  - CELLULITIS [None]
  - DISCOMFORT [None]
  - HAEMOGLOBIN DECREASED [None]
  - NAUSEA [None]
